FAERS Safety Report 15326555 (Version 1)
Quarter: 2018Q3

REPORT INFORMATION
  Report Type: Spontaneous
  Country: UA (occurrence: UA)
  Receive Date: 20180828
  Receipt Date: 20180828
  Transmission Date: 20181010
  Serious: Yes (Other)
  Sender: FDA-Public Use
  Company Number: UA-BAYER-2016-177026

PATIENT
  Age: 66 Year
  Sex: Male
  Weight: 86.62 kg

DRUGS (2)
  1. ACETYLSALICYLIC ACID({=100 MG) [Suspect]
     Active Substance: ASPIRIN
     Indication: CARDIOVASCULAR EVENT PROPHYLAXIS
     Dosage: 75 MG, QD
     Route: 048
     Dates: start: 20100120, end: 20111114
  2. IBUPROFEN. [Interacting]
     Active Substance: IBUPROFEN
     Indication: OSTEOARTHRITIS
     Dosage: 200 MG, UNK
     Route: 048
     Dates: start: 20100922, end: 20111113

REACTIONS (3)
  - Drug administration error [Recovered/Resolved]
  - Labelled drug-drug interaction medication error [Recovered/Resolved]
  - Gastric ulcer [Recovered/Resolved]

NARRATIVE: CASE EVENT DATE: 20111114
